FAERS Safety Report 11061111 (Version 2)
Quarter: 2015Q2

REPORT INFORMATION
  Report Type: Spontaneous
  Country: US (occurrence: US)
  Receive Date: 20150424
  Receipt Date: 20150505
  Transmission Date: 20150821
  Serious: Yes (Other)
  Sender: FDA-Public Use
  Company Number: US-BEH-2015050448

PATIENT
  Age: 61 Year
  Sex: Female
  Weight: 79 kg

DRUGS (20)
  1. LIDOCAINE. [Concomitant]
     Active Substance: LIDOCAINE
  2. EPIPEN [Concomitant]
     Active Substance: EPINEPHRINE
  3. VERAPAMIL [Concomitant]
     Active Substance: VERAPAMIL HYDROCHLORIDE
  4. MEDROL [Concomitant]
     Active Substance: METHYLPREDNISOLONE
  5. CALCIUM+D [Concomitant]
  6. CELEBREX [Concomitant]
     Active Substance: CELECOXIB
  7. MULTIVITAMIN [Concomitant]
     Active Substance: VITAMINS
  8. XOPENEX [Concomitant]
     Active Substance: LEVALBUTEROL HYDROCHLORIDE
  9. ACETAMINOPHEN. [Concomitant]
     Active Substance: ACETAMINOPHEN
  10. DIPHENHYDRAMINE [Concomitant]
     Active Substance: DIPHENHYDRAMINE
  11. NEXIUM [Concomitant]
     Active Substance: ESOMEPRAZOLE MAGNESIUM
  12. PROAIR HFA [Concomitant]
     Active Substance: ALBUTEROL SULFATE
  13. HIZENTRA [Suspect]
     Active Substance: HUMAN IMMUNOGLOBULIN G
     Indication: IMMUNODEFICIENCY COMMON VARIABLE
     Route: 058
     Dates: start: 20150409, end: 20150409
  14. DOXEPIN [Concomitant]
     Active Substance: DOXEPIN
  15. ALVESCO [Concomitant]
     Active Substance: CICLESONIDE
  16. RESTASIS [Concomitant]
     Active Substance: CYCLOSPORINE
  17. BUMETADINE [Concomitant]
  18. BUDESONIDE. [Concomitant]
     Active Substance: BUDESONIDE
  19. ZANTAC [Concomitant]
     Active Substance: RANITIDINE HYDROCHLORIDE
  20. ESTRADIOL. [Concomitant]
     Active Substance: ESTRADIOL

REACTIONS (3)
  - Injection site infection [Recovered/Resolved]
  - Injection site swelling [Recovered/Resolved]
  - Injection site erythema [Recovered/Resolved]

NARRATIVE: CASE EVENT DATE: 20150409
